FAERS Safety Report 9914046 (Version 1)
Quarter: 2014Q1

REPORT INFORMATION
  Report Type: Spontaneous
  Country: FR (occurrence: FR)
  Receive Date: 20140220
  Receipt Date: 20140220
  Transmission Date: 20141002
  Serious: Yes (Hospitalization, Other)
  Sender: FDA-Public Use
  Company Number: FR-BAYER-2014-021494

PATIENT
  Age: 73 Year
  Sex: Male

DRUGS (10)
  1. CIFLOX [Suspect]
     Indication: INFECTION
     Route: 042
  2. TIENAM [Suspect]
     Indication: INFECTION
     Route: 042
  3. VANCOMYCIN [Suspect]
     Indication: INFECTION
     Route: 042
  4. AMIKACINE [Suspect]
     Indication: INFECTION
     Route: 042
  5. VFEND [Suspect]
     Indication: INFECTION
     Route: 042
  6. LOVENOX [Suspect]
     Route: 058
  7. EFFEXOR [Concomitant]
     Route: 048
  8. INEXIUM [Concomitant]
     Dosage: 20 MG, QD
     Route: 048
  9. DIFFU K [Concomitant]
     Dosage: 2 DF, TID
     Route: 048
  10. GELOX [Concomitant]
     Route: 048

REACTIONS (1)
  - Neutropenia [Recovered/Resolved]
